FAERS Safety Report 17267195 (Version 1)
Quarter: 2020Q1

REPORT INFORMATION
  Report Type: Spontaneous
  Country: US (occurrence: US)
  Receive Date: 20200114
  Receipt Date: 20200114
  Transmission Date: 20200409
  Serious: No
  Sender: FDA-Public Use
  Company Number: US-ASTRAZENECA-2019SF88375

PATIENT
  Age: 24087 Day
  Sex: Female
  Weight: 82.6 kg

DRUGS (5)
  1. BYDUREON BCISE [Suspect]
     Active Substance: EXENATIDE
     Indication: TYPE 2 DIABETES MELLITUS
     Route: 058
     Dates: start: 20191206
  2. HCTZ [Concomitant]
     Active Substance: HYDROCHLOROTHIAZIDE
  3. BABY ASPIRIN [Concomitant]
     Active Substance: ASPIRIN
  4. METFORMIN [Concomitant]
     Active Substance: METFORMIN HYDROCHLORIDE
  5. DIURETIC [Concomitant]
     Active Substance: UNSPECIFIED INGREDIENT

REACTIONS (10)
  - Incorrect dose administered [Not Recovered/Not Resolved]
  - Nausea [Recovered/Resolved]
  - Wrong technique in device usage process [Not Recovered/Not Resolved]
  - Intentional device misuse [Not Recovered/Not Resolved]
  - Product preparation issue [Unknown]
  - Device malfunction [Unknown]
  - Diarrhoea [Recovered/Resolved]
  - Thirst decreased [Unknown]
  - Renal impairment [Unknown]
  - Device leakage [Unknown]

NARRATIVE: CASE EVENT DATE: 20191206
